FAERS Safety Report 9813198 (Version 2)
Quarter: 2014Q1

REPORT INFORMATION
  Report Type: Spontaneous
  Country: US (occurrence: US)
  Receive Date: 20140113
  Receipt Date: 20140305
  Transmission Date: 20141002
  Serious: Yes (Death, Other)
  Sender: FDA-Public Use
  Company Number: US-JNJFOC-20140104855

PATIENT
  Sex: Female

DRUGS (4)
  1. REMICADE [Suspect]
     Indication: COLITIS ULCERATIVE
     Dosage: TOTAL DOSE OF 350 MG; RECEIVED A TOTAL OF 8 INFUSIONS
     Route: 042
     Dates: start: 20100824, end: 20110623
  2. PREDNISONE [Concomitant]
     Indication: COLITIS ULCERATIVE
     Dosage: TAPERING DOSE
     Route: 048
     Dates: start: 20100106
  3. LIALDA [Concomitant]
     Indication: COLITIS ULCERATIVE
     Dosage: 1.2 G II PER DAY
     Route: 065
     Dates: start: 201001
  4. ROWASA ENEMA [Concomitant]
     Indication: COLITIS ULCERATIVE
     Dosage: HS
     Route: 065
     Dates: start: 201001

REACTIONS (2)
  - Lung neoplasm malignant [Fatal]
  - Pulmonary oedema [Unknown]
